FAERS Safety Report 9378608 (Version 1)
Quarter: 2013Q2

REPORT INFORMATION
  Report Type: Spontaneous
  Country: FR (occurrence: None)
  Receive Date: 20130626
  Receipt Date: 20130626
  Transmission Date: 20140414
  Serious: Yes (Other)
  Sender: FDA-Public Use
  Company Number: NGX_01861_2013

PATIENT
  Age: 50 Year
  Sex: Male

DRUGS (4)
  1. QUTENZA [Suspect]
     Indication: NEURALGIA
     Route: 061
     Dates: start: 20130131, end: 20130202
  2. NEURONTIN [Concomitant]
  3. TRAMADOL HYDROCHLORIDE [Concomitant]
  4. VERSATIS [Concomitant]

REACTIONS (6)
  - Application site pruritus [None]
  - Application site ulcer [None]
  - Application site scar [None]
  - Skin lesion [None]
  - Off label use [None]
  - Incorrect drug administration duration [None]
